FAERS Safety Report 17436899 (Version 1)
Quarter: 2020Q1

REPORT INFORMATION
  Report Type: Report from Study
  Country: IT (occurrence: IT)
  Receive Date: 20200219
  Receipt Date: 20200219
  Transmission Date: 20200409
  Serious: Yes (Hospitalization)
  Sender: FDA-Public Use
  Company Number: IT-MYLANLABS-2020M1018194

PATIENT
  Age: 63 Year
  Sex: Male

DRUGS (10)
  1. LASITONE [Concomitant]
     Active Substance: FUROSEMIDE\SPIRONOLACTONE
     Dosage: 1 DOSAGE FORM
     Route: 048
  2. PANTOPRAZOLE SODIUM SESQUIHYDRATE [Concomitant]
     Active Substance: PANTOPRAZOLE SODIUM
     Dosage: 40 MILLIGRAM
     Route: 048
  3. ALPRAZOLAM. [Suspect]
     Active Substance: ALPRAZOLAM
     Indication: PRODUCT USED FOR UNKNOWN INDICATION
     Dosage: 20 MILLIGRAM, TOTAL
     Route: 048
     Dates: start: 20191103, end: 20191103
  4. EUTIROX [Concomitant]
     Active Substance: LEVOTHYROXINE SODIUM
     Dosage: 1 DOSAGE FORM
     Route: 048
  5. TAMSULOSIN HYDROCHLORIDE. [Concomitant]
     Active Substance: TAMSULOSIN HYDROCHLORIDE
     Dosage: 0.4 MILLIGRAM
     Route: 048
  6. CARDIOASPIRIN [Concomitant]
     Active Substance: ASPIRIN
     Dosage: 1 DOSAGE FORM
     Route: 048
  7. TORVAST [Concomitant]
     Active Substance: ATORVASTATIN
     Dosage: 1 DOSAGE FORM
     Route: 048
  8. REPAGLINIDE. [Concomitant]
     Active Substance: REPAGLINIDE
     Dosage: 1 MILLIGRAM
     Route: 048
  9. CLOPIDOGREL HYDROCHLORIDE [Concomitant]
     Active Substance: CLOPIDOGREL HYDROCHLORIDE
     Dosage: 75 MILLIGRAM
     Route: 048
  10. VIMPAT [Concomitant]
     Active Substance: LACOSAMIDE
     Dosage: 2 DOSAGE FORM
     Route: 048

REACTIONS (3)
  - Loss of consciousness [Recovered/Resolved]
  - Intentional overdose [Unknown]
  - Drug abuse [Recovered/Resolved]

NARRATIVE: CASE EVENT DATE: 20191103
